FAERS Safety Report 26110912 (Version 2)
Quarter: 2025Q4

REPORT INFORMATION
  Report Type: Spontaneous
  Country: GB (occurrence: GB)
  Receive Date: 20251202
  Receipt Date: 20251212
  Transmission Date: 20260118
  Serious: Yes (Life-Threatening, Hospitalization, Disabling, Other)
  Sender: MICRO LABS LIMITED
  Company Number: None

PATIENT
  Age: 56 Year
  Sex: Female
  Weight: 68 kg

DRUGS (3)
  1. VARENICLINE [Suspect]
     Active Substance: VARENICLINE
     Indication: Ex-tobacco user
     Dosage: I BELIEVE 1MG VARENICLINE PER DAY, I THINK INITIALLY WHEN I STARTED THERE WAS 2 TO BE TAKEN A DAY FO
     Dates: start: 20241101
  2. OMEPRAZOLE [Concomitant]
     Active Substance: OMEPRAZOLE
     Indication: Hiatus hernia
     Dates: start: 20120601
  3. OMEPRAZOLE [Concomitant]
     Active Substance: OMEPRAZOLE
     Indication: Dyspepsia

REACTIONS (1)
  - Myocardial infarction [Recovered/Resolved with Sequelae]

NARRATIVE: CASE EVENT DATE: 20250402
